FAERS Safety Report 24267822 (Version 1)
Quarter: 2024Q3

REPORT INFORMATION
  Report Type: Spontaneous
  Country: US (occurrence: US)
  Receive Date: 20240830
  Receipt Date: 20240830
  Transmission Date: 20241017
  Serious: Yes (Other)
  Sender: COLGATE
  Company Number: US-COLGATE PALMOLIVE COMPANY-20240801316

PATIENT
  Age: 24 Year
  Sex: Female

DRUGS (1)
  1. SODIUM FLUORIDE [Suspect]
     Active Substance: SODIUM FLUORIDE\SODIUM MONOFLUOROPHOSPHATE

REACTIONS (5)
  - Syncope [Unknown]
  - Chemical burn [Unknown]
  - Oral mucosal eruption [Recovering/Resolving]
  - Oral mucosal eruption [Recovering/Resolving]
  - Product odour abnormal [Unknown]
